FAERS Safety Report 19975425 (Version 1)
Quarter: 2021Q4

REPORT INFORMATION
  Report Type: Spontaneous
  Country: US (occurrence: US)
  Receive Date: 20211020
  Receipt Date: 20211020
  Transmission Date: 20220303
  Serious: No
  Sender: FDA-Public Use
  Company Number: US-GSKCCFUS-CASE-01196295_AE-69976

PATIENT
  Sex: Female

DRUGS (1)
  1. TRELEGY ELLIPTA [Suspect]
     Active Substance: FLUTICASONE FUROATE\UMECLIDINIUM BROMIDE\VILANTEROL TRIFENATATE
     Indication: Product used for unknown indication
     Dosage: 100/62.5/25MCG
     Route: 055
     Dates: start: 20211014, end: 20211016

REACTIONS (5)
  - Malaise [Recovered/Resolved]
  - Hypersomnia [Recovered/Resolved]
  - Nervousness [Unknown]
  - Agitation [Unknown]
  - Tremor [Unknown]
